FAERS Safety Report 18899698 (Version 1)
Quarter: 2021Q1

REPORT INFORMATION
  Report Type: Spontaneous
  Country: FR (occurrence: FR)
  Receive Date: 20210216
  Receipt Date: 20210216
  Transmission Date: 20210420
  Serious: Yes (Hospitalization)
  Sender: FDA-Public Use
  Company Number: FR-TEVA-2021-FR-1879473

PATIENT
  Age: 53 Year
  Sex: Female

DRUGS (9)
  1. CARBOPLATINE [Suspect]
     Active Substance: CARBOPLATIN
     Dosage: 230 MG
     Route: 042
     Dates: start: 20201110
  2. PACLITAXEL. [Suspect]
     Active Substance: PACLITAXEL
     Dosage: 230 MG
     Route: 042
     Dates: start: 20201110
  3. IMFINZI [Concomitant]
     Active Substance: DURVALUMAB
     Indication: BREAST CANCER
     Dosage: 230 MG
     Route: 042
     Dates: start: 20201110, end: 20201208
  4. CARBOPLATINE [Suspect]
     Active Substance: CARBOPLATIN
     Indication: BREAST CANCER
     Dosage: 230 MG
     Route: 042
     Dates: start: 20201110
  5. CARBOPLATINE [Suspect]
     Active Substance: CARBOPLATIN
     Dosage: 230 MG
     Route: 042
     Dates: start: 20201110
  6. PACLITAXEL. [Suspect]
     Active Substance: PACLITAXEL
     Dosage: 159 MG
     Route: 042
     Dates: start: 20201110
  7. IMFINZI [Concomitant]
     Active Substance: DURVALUMAB
     Dosage: 230 MG
     Route: 042
     Dates: start: 20201110
  8. IMFINZI [Concomitant]
     Active Substance: DURVALUMAB
     Dosage: 230 MG
     Route: 042
     Dates: start: 20201110
  9. PACLITAXEL. [Suspect]
     Active Substance: PACLITAXEL
     Indication: BREAST CANCER
     Dosage: 230 MG
     Route: 042
     Dates: start: 20201110

REACTIONS (1)
  - Pyrexia [Recovered/Resolved]

NARRATIVE: CASE EVENT DATE: 20201201
